FAERS Safety Report 26183227 (Version 1)
Quarter: 2025Q4

REPORT INFORMATION
  Report Type: Spontaneous
  Country: CA (occurrence: CA)
  Receive Date: 20251221
  Receipt Date: 20251221
  Transmission Date: 20260117
  Serious: Yes (Other)
  Sender: AUROBINDO
  Company Number: CA-AUROBINDO-AUR-APL-2025-065302

PATIENT
  Age: 51 Year
  Sex: Female

DRUGS (2)
  1. CEPHALEXIN [Suspect]
     Active Substance: CEPHALEXIN
     Indication: Haematological infection
     Dosage: 500 MILLIGRAM, FOUR TIMES/DAY
     Route: 061
  2. CEPHALEXIN [Suspect]
     Active Substance: CEPHALEXIN
     Indication: Beta haemolytic streptococcal infection

REACTIONS (2)
  - Cough [Unknown]
  - Swollen tongue [Unknown]
